FAERS Safety Report 5211009-2 (Version None)
Quarter: 2007Q1

REPORT INFORMATION
  Report Type: 
  Country: None (occurrence: None)
  Receive Date: 20070117
  Receipt Date: 20070105
  Transmission Date: 20070707
  Serious: Yes (Other)
  Sender: FDA-Public Use
  Company Number: US-PFIZER INC-2007002378

PATIENT
  Sex: Female
  Weight: 45.4 kg

DRUGS (1)
  1. LYRICA [Suspect]

REACTIONS (2)
  - EYELID OEDEMA [None]
  - FACE OEDEMA [None]
